FAERS Safety Report 15042329 (Version 3)
Quarter: 2021Q2

REPORT INFORMATION
  Report Type: Spontaneous
  Country: US (occurrence: US)
  Receive Date: 20180621
  Receipt Date: 20210622
  Transmission Date: 20210716
  Serious: Yes (Other)
  Sender: FDA-Public Use
  Company Number: US-ASTRAZENECA-2018SE77596

PATIENT
  Age: 21060 Day
  Sex: Male
  Weight: 115.7 kg

DRUGS (32)
  1. NEXIUM [Suspect]
     Active Substance: ESOMEPRAZOLE MAGNESIUM
     Indication: GASTROOESOPHAGEAL REFLUX DISEASE
     Route: 048
     Dates: start: 200901, end: 201606
  2. CITALOPRAM [Concomitant]
     Active Substance: CITALOPRAM HYDROBROMIDE
  3. CLINDAMYCIN. [Concomitant]
     Active Substance: CLINDAMYCIN
  4. CEFUROXIME. [Concomitant]
     Active Substance: CEFUROXIME
  5. GABAPENTIN. [Concomitant]
     Active Substance: GABAPENTIN
  6. SPIRONOLACTONE. [Concomitant]
     Active Substance: SPIRONOLACTONE
  7. TYLENOL [Concomitant]
     Active Substance: ACETAMINOPHEN
  8. PEPCID [Concomitant]
     Active Substance: FAMOTIDINE
  9. DICYCLOMINE [Concomitant]
     Active Substance: DICYCLOMINE HYDROCHLORIDE
  10. FUROSEMIDE. [Concomitant]
     Active Substance: FUROSEMIDE
  11. DEXILANT [Suspect]
     Active Substance: DEXLANSOPRAZOLE
     Route: 065
     Dates: start: 200901, end: 201606
  12. LEXAPRO [Concomitant]
     Active Substance: ESCITALOPRAM OXALATE
  13. HYDROCODONE [Concomitant]
     Active Substance: HYDROCODONE
  14. CYCLOBENZAPRINE. [Concomitant]
     Active Substance: CYCLOBENZAPRINE
  15. SUCRALFATE. [Concomitant]
     Active Substance: SUCRALFATE
  16. NEXIUM [Suspect]
     Active Substance: ESOMEPRAZOLE MAGNESIUM
     Indication: GASTROOESOPHAGEAL REFLUX DISEASE
     Route: 048
     Dates: start: 20090317, end: 20110103
  17. CEPHALEXIN. [Concomitant]
     Active Substance: CEPHALEXIN
  18. DEXILANT [Suspect]
     Active Substance: DEXLANSOPRAZOLE
     Route: 065
     Dates: start: 2015
  19. FOSINOPRIL [Concomitant]
     Active Substance: FOSINOPRIL
  20. NORVASC [Concomitant]
     Active Substance: AMLODIPINE BESYLATE
  21. IBUPROFEN. [Concomitant]
     Active Substance: IBUPROFEN
  22. PREDNISONE. [Concomitant]
     Active Substance: PREDNISONE
  23. DEXAMETHASONE. [Concomitant]
     Active Substance: DEXAMETHASONE
  24. OMEPRAZOLE. [Suspect]
     Active Substance: OMEPRAZOLE
     Indication: GASTROOESOPHAGEAL REFLUX DISEASE
     Route: 065
     Dates: start: 20070117, end: 20090214
  25. OMEPRAZOLE. [Suspect]
     Active Substance: OMEPRAZOLE
     Indication: GASTROOESOPHAGEAL REFLUX DISEASE
     Route: 065
     Dates: start: 20160626
  26. DEXILANT [Suspect]
     Active Substance: DEXLANSOPRAZOLE
     Route: 065
     Dates: start: 20110117, end: 20120327
  27. ROXICET [Concomitant]
     Active Substance: ACETAMINOPHEN\OXYCODONE HYDROCHLORIDE
  28. DEXILANT [Suspect]
     Active Substance: DEXLANSOPRAZOLE
     Route: 065
     Dates: start: 2014
  29. DEXILANT [Suspect]
     Active Substance: DEXLANSOPRAZOLE
     Route: 065
     Dates: start: 20160612
  30. ALPRAZOLAM. [Concomitant]
     Active Substance: ALPRAZOLAM
  31. BACLOFEN. [Concomitant]
     Active Substance: BACLOFEN
  32. BACLOFEN. [Concomitant]
     Active Substance: BACLOFEN

REACTIONS (4)
  - Acute kidney injury [Not Recovered/Not Resolved]
  - Chronic kidney disease [Unknown]
  - Renal tubular necrosis [Unknown]
  - Hyperkalaemia [Unknown]

NARRATIVE: CASE EVENT DATE: 20150612
